FAERS Safety Report 23744243 (Version 1)
Quarter: 2024Q2

REPORT INFORMATION
  Report Type: Spontaneous
  Country: US (occurrence: None)
  Receive Date: 20240414
  Receipt Date: 20240414
  Transmission Date: 20240715
  Serious: No
  Sender: FDA-Public Use
  Company Number: None

PATIENT
  Age: 41 Year
  Sex: Male
  Weight: 81 kg

DRUGS (1)
  1. CIPROFLOXACIN HYDROCHLORIDE [Suspect]
     Active Substance: CIPROFLOXACIN HYDROCHLORIDE
     Indication: Urinary tract infection
     Dosage: OTHER QUANTITY : 14 TABLET(S);?FREQUENCY : EVERY 12 HOURS;?
     Route: 048
     Dates: start: 20240410, end: 20240410

REACTIONS (13)
  - Insomnia [None]
  - Abdominal pain [None]
  - Anxiety [None]
  - Near death experience [None]
  - Arthralgia [None]
  - Headache [None]
  - Paraesthesia [None]
  - Hypoaesthesia [None]
  - Diarrhoea [None]
  - Tremor [None]
  - Joint stiffness [None]
  - Arthralgia [None]
  - Musculoskeletal chest pain [None]

NARRATIVE: CASE EVENT DATE: 20240411
